FAERS Safety Report 4272900-7 (Version None)
Quarter: 2004Q1

REPORT INFORMATION
  Report Type: 
  Country: None (occurrence: None)
  Receive Date: 20040114
  Receipt Date: 20040106
  Transmission Date: 20041129
  Serious: Yes (Other)
  Sender: FDA-Public Use
  Company Number: 2003124354

PATIENT
  Age: 7 Year
  Sex: Male

DRUGS (2)
  1. ETHOSUXIMIDE [Suspect]
     Indication: PETIT MAL EPILEPSY
     Dosage: 500 MG (BID), ORAL
     Route: 048
     Dates: start: 20031210, end: 20031201
  2. VALPROIC ACID [Concomitant]

REACTIONS (3)
  - CONVULSION [None]
  - RASH [None]
  - URTICARIA [None]
